FAERS Safety Report 4893725-5 (Version None)
Quarter: 2006Q1

REPORT INFORMATION
  Report Type: 
  Country: None (occurrence: None)
  Receive Date: 20060127
  Receipt Date: 20060117
  Transmission Date: 20060701
  Serious: Yes (Hospitalization)
  Sender: FDA-Public Use
  Company Number: ES-GLAXOSMITHKLINE-B0407118A

PATIENT
  Age: 63 Year
  Sex: Male

DRUGS (3)
  1. FONDAPARINUX SODIUM [Suspect]
     Indication: ACUTE MYOCARDIAL INFARCTION
     Dosage: 2.5MG PER DAY
     Route: 058
     Dates: start: 20040608
  2. ASPIRIN [Concomitant]
  3. ATENOLOL [Concomitant]

REACTIONS (2)
  - CHEST PAIN [None]
  - CORONARY ARTERY THROMBOSIS [None]
